FAERS Safety Report 7337987-3 (Version None)
Quarter: 2011Q1

REPORT INFORMATION
  Report Type: 
  Country: None (occurrence: None)
  Receive Date: 20110308
  Receipt Date: 20110304
  Transmission Date: 20110831
  Serious: Yes (Hospitalization)
  Sender: FDA-Public Use
  Company Number: US-ROCHE-763842

PATIENT
  Age: 67 Year
  Sex: Female

DRUGS (2)
  1. XELODA [Suspect]
     Dosage: 7 DAYS ON AND 7 DAYS OFF
     Route: 048
  2. XELODA [Suspect]
     Dosage: 4 DAYS ON AND 14 DAYS OFF
     Route: 048
     Dates: start: 20090501, end: 20100415

REACTIONS (10)
  - TUMOUR MARKER INCREASED [None]
  - PAIN [None]
  - DIAPHRAGMATIC HERNIA [None]
  - COORDINATION ABNORMAL [None]
  - CERVIX HAEMORRHAGE UTERINE [None]
  - MUSCULOSKELETAL DISORDER [None]
  - DIARRHOEA [None]
  - HEPATECTOMY [None]
  - HEPATIC LESION [None]
  - SKIN ATROPHY [None]
